FAERS Safety Report 18455039 (Version 3)
Quarter: 2020Q4

REPORT INFORMATION
  Report Type: Report from Study
  Country: None (occurrence: FR)
  Receive Date: 20201103
  Receipt Date: 20201130
  Transmission Date: 20210114
  Serious: Yes (Life-Threatening)
  Sender: FDA-Public Use
  Company Number: FR-BIOVITRUM-2020FR4994

PATIENT
  Age: 86 Year
  Sex: Male
  Weight: 80 kg

DRUGS (15)
  1. KINERET [Suspect]
     Active Substance: ANAKINRA
  2. AZITHROMYCIN ANHYDROUS. [Concomitant]
     Active Substance: AZITHROMYCIN ANHYDROUS
     Indication: PROPHYLAXIS
     Dosage: 250, 2 TABLETS
     Dates: start: 20200910
  3. LOVENOX [Concomitant]
     Active Substance: ENOXAPARIN SODIUM
     Indication: PROPHYLAXIS
     Dates: start: 20200908
  4. SOLU-MEDROL [Concomitant]
     Active Substance: METHYLPREDNISOLONE SODIUM SUCCINATE
     Dosage: 1 MG/KG
     Dates: start: 20200907
  5. KINERET [Suspect]
     Active Substance: ANAKINRA
  6. KINERET [Suspect]
     Active Substance: ANAKINRA
     Indication: COVID-19
     Dosage: 100 MG 4 TIMES DAILY FOR 3 DAYS, THEN 100 MG TWICE DAILY FOR 6 DAYS
     Dates: start: 20200910
  7. KINERET [Suspect]
     Active Substance: ANAKINRA
  8. KINERET [Suspect]
     Active Substance: ANAKINRA
  9. KINERET [Suspect]
     Active Substance: ANAKINRA
  10. KINERET [Suspect]
     Active Substance: ANAKINRA
  11. KINERET [Suspect]
     Active Substance: ANAKINRA
  12. KINERET [Suspect]
     Active Substance: ANAKINRA
  13. KINERET [Suspect]
     Active Substance: ANAKINRA
  14. METHYLPREDNISOLONE. [Concomitant]
     Active Substance: METHYLPREDNISOLONE
     Indication: COVID-19
     Dosage: 60MG, 40MG AND 20MG
     Dates: start: 20200910
  15. KINERET [Suspect]
     Active Substance: ANAKINRA

REACTIONS (1)
  - Acute respiratory distress syndrome [Recovered/Resolved]

NARRATIVE: CASE EVENT DATE: 20200913
